APPROVED DRUG PRODUCT: TICLOPIDINE HYDROCHLORIDE
Active Ingredient: TICLOPIDINE HYDROCHLORIDE
Strength: 250MG
Dosage Form/Route: TABLET;ORAL
Application: A075526 | Product #001
Applicant: SUN PHARMACEUTICAL INDUSTRIES INC
Approved: Sep 26, 2002 | RLD: No | RS: No | Type: DISCN